FAERS Safety Report 8615339-3 (Version None)
Quarter: 2012Q3

REPORT INFORMATION
  Report Type: 
  Country: None (occurrence: None)
  Receive Date: 20120823
  Receipt Date: 20120814
  Transmission Date: 20120928
  Serious: Yes (Other)
  Sender: FDA-Public Use
  Company Number: AR-SHIRE-ALL1-2012-03772

PATIENT
  Age: 31 Year
  Sex: Male
  Weight: 60 kg

DRUGS (6)
  1. MYCOPHENOLIC ACID [Concomitant]
     Indication: PROPHYLAXIS AGAINST TRANSPLANT REJECTION
     Dosage: 360 MG, 1X/DAY:QD
     Route: 065
     Dates: start: 20120101
  2. MEPREDNISONE [Concomitant]
     Indication: PRODUCT USED FOR UNKNOWN INDICATION
     Dosage: 4 MG, 1X/DAY:QD
     Route: 065
     Dates: start: 20120101
  3. MAGNESIUM CITRATE [Concomitant]
     Indication: PRODUCT USED FOR UNKNOWN INDICATION
     Dosage: 528 MG, 2X/DAY:BID
     Route: 065
     Dates: start: 20120101
  4. VPRIV [Suspect]
     Indication: GAUCHER'S DISEASE
     Dosage: 60 MG/KG, 1X/2WKS
     Route: 041
     Dates: start: 20120601
  5. TACROLIMUS [Concomitant]
     Indication: PROPHYLAXIS AGAINST TRANSPLANT REJECTION
     Dosage: 6 ML, 1X/DAY:QD
     Route: 065
     Dates: start: 20120101
  6. OMEPRAZOLE [Concomitant]
     Indication: PRODUCT USED FOR UNKNOWN INDICATION
     Dosage: 20 MG, 1X/DAY:QD
     Route: 048
     Dates: start: 20120101

REACTIONS (1)
  - HEPATOMEGALY [None]
